FAERS Safety Report 4854311-6 (Version None)
Quarter: 2005Q4

REPORT INFORMATION
  Report Type: 
  Country: None (occurrence: None)
  Receive Date: 20051215
  Receipt Date: 20051206
  Transmission Date: 20060501
  Serious: Yes (Other)
  Sender: FDA-Public Use
  Company Number: PHRM2005FR03210

PATIENT
  Age: 25 Year
  Sex: Female

DRUGS (4)
  1. LOXAPAC [Concomitant]
  2. DEPAKENE [Concomitant]
  3. LYSANXIA [Concomitant]
  4. LEPONEX [Suspect]
     Indication: SCHIZOPHRENIA
     Dosage: 300MG, DAILY
     Route: 048
     Dates: end: 20051201

REACTIONS (4)
  - CONFUSIONAL STATE [None]
  - DERMATITIS BULLOUS [None]
  - INFLAMMATION [None]
  - PYREXIA [None]
